FAERS Safety Report 4322983-0 (Version None)
Quarter: 2004Q1

REPORT INFORMATION
  Report Type: 
  Country: None (occurrence: None)
  Receive Date: 20040322
  Receipt Date: 20040312
  Transmission Date: 20041129
  Serious: Yes (Hospitalization)
  Sender: FDA-Public Use
  Company Number: KDL062969

PATIENT
  Age: 71 Year
  Sex: Male
  Weight: 62.7 kg

DRUGS (19)
  1. PROCRIT [Suspect]
     Indication: ANAEMIA
     Dates: end: 20031201
  2. WARFARIN SODIUM [Concomitant]
  3. PIOGLITAZONE HCL [Concomitant]
  4. DILTIAZEM HYDROCHLORIDE [Concomitant]
  5. DIGOXIN [Concomitant]
  6. TERAZOSIN HYDROCHLORIDE [Concomitant]
  7. GLIPIZIDE [Concomitant]
  8. ATORVASTATIN CALCIUM [Concomitant]
  9. FENOFIBRATE [Concomitant]
  10. TRIAMTERENE [Concomitant]
  11. HYDROCHLOROTHIAZIDE [Concomitant]
  12. RAMIPRIL [Concomitant]
  13. DEXTRIFERRON [Concomitant]
  14. DEXTROPROPOXYPHENE NAPSILATE W/ ACETAMINOPHEN [Concomitant]
  15. MECLIZINE [Concomitant]
  16. PAROXETINE HCL [Concomitant]
  17. GUAIFENESIN [Concomitant]
  18. MEGESTROL ACETATE [Concomitant]
  19. FINASTERIDE [Concomitant]

REACTIONS (9)
  - ATRIAL FIBRILLATION [None]
  - BACTERAEMIA [None]
  - COLONIC HAEMORRHAGE [None]
  - LARGE INTESTINAL STRICTURE [None]
  - METABOLIC ACIDOSIS [None]
  - POSTOPERATIVE INFECTION [None]
  - RESPIRATORY FAILURE [None]
  - SEPSIS [None]
  - STAPHYLOCOCCAL INFECTION [None]
